FAERS Safety Report 5197452-9 (Version None)
Quarter: 2006Q4

REPORT INFORMATION
  Report Type: 
  Country: None (occurrence: None)
  Receive Date: 20061228
  Receipt Date: 20061218
  Transmission Date: 20070319
  Serious: Yes (Hospitalization)
  Sender: FDA-Public Use
  Company Number: B0433609A

PATIENT
  Age: 59 Year
  Sex: Male

DRUGS (6)
  1. AMOXICILLIN TRIHYDRATE [Suspect]
     Indication: NASOPHARYNGITIS
     Dosage: 250 MG / THREE TIMES PER DAY / ORAL
     Route: 048
     Dates: start: 20060614
  2. ACETAMINOPHEN [Suspect]
     Indication: NASOPHARYNGITIS
     Dosage: 400 MG / AS REQUIRED / ORAL
     Route: 048
     Dates: start: 20060614, end: 20060617
  3. CHINESE MEDICATION [Concomitant]
  4. COUGH MEDICATION [Concomitant]
  5. TRANEXAMIC ACID [Concomitant]
  6. TRANEXAMIC ACID [Concomitant]

REACTIONS (10)
  - BRONCHOALVEOLAR LAVAGE ABNORMAL [None]
  - CHEST X-RAY ABNORMAL [None]
  - DRUG HYPERSENSITIVITY [None]
  - EOSINOPHIL COUNT INCREASED [None]
  - INTERSTITIAL LUNG DISEASE [None]
  - LYMPHOCYTE STIMULATION TEST POSITIVE [None]
  - PNEUMONIA [None]
  - PULMONARY GRANULOMA [None]
  - PYREXIA [None]
  - RASH GENERALISED [None]
